FAERS Safety Report 9219537 (Version 1)
Quarter: 2013Q1

REPORT INFORMATION
  Report Type: Spontaneous
  Country: US (occurrence: None)
  Receive Date: 20120830
  Receipt Date: 20120830
  Transmission Date: 20140127
  Serious: Yes (Other)
  Sender: FDA-Public Use
  Company Number: PHEH2011US04610

PATIENT
  Age: 63 Year
  Sex: Female

DRUGS (5)
  1. EXFORGE (VALSARTAN, AMLODIPINE) UNKNOWN, 320/5MG [Suspect]
     Indication: BLOOD PRESSURE INADEQUATELY CONTROLLED
     Dosage: 1 DF, QD (320 MG VALS AND 5 MG AMLO)
  2. BYSTAL (BYSTAL) [Suspect]
     Indication: BLOOD PRESSURE INADEQUATELY CONTROLLED
  3. CRESTOR (ROSUVASTATIN CALCIUM) [Suspect]
     Indication: BLOOD PRESSURE INADEQUATELY CONTROLLED
  4. ZETIA (EZETIMIBE) [Concomitant]
  5. WATER PILLS (AMMONIUM CHLORIDE, CAFFEINE) [Concomitant]

REACTIONS (2)
  - Heart rate increased [None]
  - Hypertension [None]
